FAERS Safety Report 17062683 (Version 1)
Quarter: 2019Q4

REPORT INFORMATION
  Report Type: Spontaneous
  Country: GB (occurrence: GB)
  Receive Date: 20191122
  Receipt Date: 20191122
  Transmission Date: 20200122
  Serious: Yes (Hospitalization)
  Sender: FDA-Public Use
  Company Number: GB-TEVA-2019-GB-1139701

PATIENT
  Age: 64 Year
  Sex: Male
  Weight: 86 kg

DRUGS (5)
  1. IRBESARTAN. [Suspect]
     Active Substance: IRBESARTAN
     Indication: RENAL HYPERTENSION
     Dosage: 300 MG
     Route: 048
     Dates: start: 20080707, end: 20170712
  2. CHLORPHENAMINE [Concomitant]
     Active Substance: CHLORPHENIRAMINE MALEATE
  3. LACIDIPINE [Concomitant]
     Active Substance: LACIDIPINE
  4. ATENOLOL. [Concomitant]
     Active Substance: ATENOLOL
  5. AMLODIPINE BESILATE [Concomitant]
     Active Substance: AMLODIPINE BESYLATE

REACTIONS (2)
  - Cholangiocarcinoma [Recovered/Resolved with Sequelae]
  - Cholangitis sclerosing [Recovered/Resolved with Sequelae]

NARRATIVE: CASE EVENT DATE: 201610
